FAERS Safety Report 18930987 (Version 1)
Quarter: 2021Q1

REPORT INFORMATION
  Report Type: Spontaneous
  Country: DE (occurrence: DE)
  Receive Date: 20210224
  Receipt Date: 20210224
  Transmission Date: 20210420
  Serious: Yes (Other)
  Sender: FDA-Public Use
  Company Number: DE-ESPERIONTHERAPEUTICS-2021DEU00358

PATIENT
  Sex: Male

DRUGS (1)
  1. NILEMDO [Suspect]
     Active Substance: BEMPEDOIC ACID
     Indication: PRIMARY HYPERCHOLESTEROLAEMIA
     Dosage: 180 MG, QD
     Route: 065

REACTIONS (2)
  - Drug ineffective [Unknown]
  - Myalgia [Unknown]
